FAERS Safety Report 8475352-6 (Version None)
Quarter: 2012Q2

REPORT INFORMATION
  Report Type: 
  Country: None (occurrence: None)
  Receive Date: 20120628
  Receipt Date: 20120613
  Transmission Date: 20120825
  Serious: Yes (Other)
  Sender: FDA-Public Use
  Company Number: US-ROCHE-1078518

PATIENT
  Sex: Female
  Weight: 72.64 kg

DRUGS (7)
  1. PRISTIQ [Suspect]
     Indication: DEPRESSION
     Dosage: DAILY DOSE
     Route: 048
     Dates: end: 20120501
  2. TOPAMAX [Concomitant]
     Indication: MIGRAINE
  3. SIMVASTATIN [Concomitant]
     Indication: BLOOD CHOLESTEROL ABNORMAL
     Dosage: DAILY DOSE
  4. TOPAMAX [Concomitant]
  5. AMBIEN [Suspect]
     Indication: SLEEP DISORDER
     Dosage: DAILY
  6. LAMICTAL [Suspect]
     Indication: PRODUCT USED FOR UNKNOWN INDICATION
  7. KLONOPIN [Suspect]
     Indication: SLEEP DISORDER
     Dosage: 1 MG IN MORNING AND 3 MG AT NIGHT

REACTIONS (8)
  - ANORGASMIA [None]
  - FEELING ABNORMAL [None]
  - LOSS OF LIBIDO [None]
  - BIPOLAR DISORDER [None]
  - HEADACHE [None]
  - CRYING [None]
  - SOCIAL AVOIDANT BEHAVIOUR [None]
  - INSOMNIA [None]
